FAERS Safety Report 8351620-3 (Version None)
Quarter: 2012Q2

REPORT INFORMATION
  Report Type: 
  Country: None (occurrence: None)
  Receive Date: 20120511
  Receipt Date: 20120430
  Transmission Date: 20120825
  Serious: No
  Sender: FDA-Public Use
  Company Number: US-BIOGENIDEC-2012BI007465

PATIENT
  Sex: Female

DRUGS (2)
  1. TYSABRI [Suspect]
     Route: 042
     Dates: start: 20091104, end: 20110811
  2. TYSABRI [Suspect]
     Indication: MULTIPLE SCLEROSIS
     Route: 042
     Dates: start: 20080505, end: 20080630

REACTIONS (8)
  - EYE INJURY [None]
  - MUSCULOSKELETAL DISORDER [None]
  - FIBROMYALGIA [None]
  - SWOLLEN TONGUE [None]
  - FEELING ABNORMAL [None]
  - MULTIPLE SCLEROSIS [None]
  - TEMPERATURE INTOLERANCE [None]
  - HEADACHE [None]
